FAERS Safety Report 14726618 (Version 1)
Quarter: 2018Q2

REPORT INFORMATION
  Report Type: Spontaneous
  Country: US (occurrence: US)
  Receive Date: 20180406
  Receipt Date: 20180406
  Transmission Date: 20180711
  Serious: Yes (Death, Other)
  Sender: FDA-Public Use
  Company Number: US-CIPLA LTD.-2018US14703

PATIENT

DRUGS (3)
  1. DOCETAXEL. [Suspect]
     Active Substance: DOCETAXEL
     Indication: METASTASES TO GASTROINTESTINAL TRACT
     Dosage: 75 MG/M^2
     Route: 065
  2. CARBOPLATIN. [Suspect]
     Active Substance: CARBOPLATIN
     Indication: METASTASES TO GASTROINTESTINAL TRACT
     Dosage: 470 MG, UNK
     Route: 065
  3. 5-FLUOROURACIL                     /00098801/ [Suspect]
     Active Substance: FLUOROURACIL
     Indication: METASTASES TO GASTROINTESTINAL TRACT
     Dosage: 750 MG/M^2
     Route: 065

REACTIONS (2)
  - Death [Fatal]
  - Cardiac tamponade [Unknown]
